FAERS Safety Report 5386523-X (Version None)
Quarter: 2007Q3

REPORT INFORMATION
  Report Type: 
  Country: None (occurrence: None)
  Receive Date: 20070710
  Receipt Date: 20070419
  Transmission Date: 20080115
  Serious: Yes (Other)
  Sender: FDA-Public Use
  Company Number: 8024975

PATIENT
  Age: 18 Year
  Sex: Female

DRUGS (4)
  1. KEPPRA [Suspect]
     Indication: CONVULSION
     Dosage: NI PO
     Route: 048
     Dates: start: 20030220
  2. KEPPRA [Suspect]
     Indication: EPILEPSY
     Dosage: NI PO
     Route: 048
     Dates: start: 20030220
  3. CLONIDINE [Concomitant]
  4. BACLOFEN [Concomitant]

REACTIONS (1)
  - SUICIDE ATTEMPT [None]
